FAERS Safety Report 7049275-3 (Version None)
Quarter: 2010Q4

REPORT INFORMATION
  Report Type: 
  Country: None (occurrence: None)
  Receive Date: 20101018
  Receipt Date: 20101006
  Transmission Date: 20110411
  Serious: Yes (Other)
  Sender: FDA-Public Use
  Company Number: US-PFIZER INC-2010127149

PATIENT
  Sex: Female
  Weight: 90.703 kg

DRUGS (20)
  1. LYRICA [Suspect]
     Indication: NEUROPATHY PERIPHERAL
     Dosage: 250 MG, 1X/DAY
     Route: 048
     Dates: start: 20100928, end: 20100101
  2. LYRICA [Suspect]
     Indication: PAIN
     Dosage: 250 MG, 2X/DAY
     Route: 048
     Dates: start: 20100101, end: 20101005
  3. INSULIN [Concomitant]
     Indication: DIABETES MELLITUS
     Dosage: UNK
  4. CARBIDOPA + LEVODOPA [Concomitant]
     Indication: PARKINSON'S DISEASE
     Dosage: 25MG/100MG, 4X/DAY
     Route: 048
  5. CARVEDILOL [Concomitant]
     Indication: CARDIAC DISORDER
     Dosage: 12.5 MG, 2X/DAY
     Route: 048
  6. CLONAZEPAM [Concomitant]
     Indication: ANXIETY
     Dosage: 0.5 MG, 4X/DAY
     Route: 048
  7. COMBIVENT [Concomitant]
     Indication: CHRONIC OBSTRUCTIVE PULMONARY DISEASE
     Dosage: 14.7 G, 4X/DAY
     Route: 055
  8. FUROSEMIDE [Concomitant]
     Indication: DIURETIC THERAPY
     Dosage: 40 MG, 2X/DAY
     Route: 048
  9. IRON [Concomitant]
     Dosage: UNK
  10. KLOR-CON [Concomitant]
     Dosage: 20 MEQ, 2X/DAY
     Route: 048
  11. INSULIN DETEMIR [Concomitant]
     Indication: DIABETES MELLITUS
     Dosage: 9 IU, 1X/DAY
     Route: 058
  12. LISINOPRIL [Concomitant]
     Indication: BLOOD PRESSURE ABNORMAL
     Dosage: 10 MG, 1X/DAY
     Route: 048
  13. MELOXICAM [Concomitant]
     Dosage: 7.5 MG, 2X/DAY
     Route: 048
  14. NEXIUM [Concomitant]
     Indication: GASTRIC DISORDER
     Dosage: 140 MG, 1X/DAY
     Route: 048
  15. INSULIN ASPART [Concomitant]
     Indication: DIABETES MELLITUS
     Dosage: 9 IU, 3X/DAY
     Route: 058
  16. PRAMIPEXOLE [Concomitant]
     Dosage: 0.5 MG, 4X/DAY
     Route: 048
  17. PROPOXYPHENE NAPSYLATE W/ ACETAMINOPHEN [Concomitant]
     Indication: PAIN
     Dosage: UNK
  18. SERTRALINE [Concomitant]
     Dosage: 100 MG, 2X/DAY
  19. SYMBICORT [Concomitant]
     Dosage: 160/4.5 MCG
     Route: 055
  20. WARFARIN [Concomitant]
     Dosage: 7 MG, 1X/DAY
     Route: 048

REACTIONS (7)
  - ABDOMINAL DISCOMFORT [None]
  - BALANCE DISORDER [None]
  - DECREASED APPETITE [None]
  - DEPRESSED MOOD [None]
  - DIARRHOEA [None]
  - GAIT DISTURBANCE [None]
  - MALAISE [None]
